FAERS Safety Report 21763150 (Version 1)
Quarter: 2022Q4

REPORT INFORMATION
  Report Type: Spontaneous
  Country: US (occurrence: US)
  Receive Date: 20221221
  Receipt Date: 20221221
  Transmission Date: 20230112
  Serious: No
  Sender: FDA-Public Use
  Company Number: US-PFIZER INC-PV202200126346

PATIENT
  Age: 65 Year
  Sex: Male
  Weight: 74.83 kg

DRUGS (1)
  1. AZITHROMYCIN [Suspect]
     Active Substance: AZITHROMYCIN
     Indication: Infection
     Dosage: UNK (21ST DAY 1 THEREAFTER)
     Dates: start: 202211

REACTIONS (2)
  - Pain [Unknown]
  - Product packaging issue [Unknown]

NARRATIVE: CASE EVENT DATE: 20221101
